FAERS Safety Report 4694650-5 (Version None)
Quarter: 2005Q2

REPORT INFORMATION
  Report Type: 
  Country: None (occurrence: None)
  Receive Date: 20050620
  Receipt Date: 20000117
  Transmission Date: 20051028
  Serious: Yes (Death, Hospitalization)
  Sender: FDA-Public Use
  Company Number: CA-GLAXOSMITHKLINE-A0109926A

PATIENT
  Age: 18 Year
  Sex: Male

DRUGS (2)
  1. VENTOLIN [Suspect]
     Indication: ASTHMA
     Route: 055
  2. SEREVENT [Suspect]
     Indication: ASTHMA

REACTIONS (12)
  - ASPHYXIA [None]
  - ASTHMA [None]
  - BRAIN DAMAGE [None]
  - BRONCHIAL OBSTRUCTION [None]
  - CARDIAC ARREST [None]
  - CONVULSION [None]
  - DRUG INEFFECTIVE [None]
  - DYSPNOEA [None]
  - FATIGUE [None]
  - HYPOXIA [None]
  - LOSS OF CONSCIOUSNESS [None]
  - PULSE ABSENT [None]
